FAERS Safety Report 8168141-3 (Version None)
Quarter: 2012Q1

REPORT INFORMATION
  Report Type: 
  Country: None (occurrence: None)
  Receive Date: 20120227
  Receipt Date: 20120221
  Transmission Date: 20120608
  Serious: Yes (Hospitalization)
  Sender: FDA-Public Use
  Company Number: PHHY2012FR016063

PATIENT
  Age: 36 Year
  Sex: Male

DRUGS (3)
  1. KEPPRA [Suspect]
     Indication: EPILEPSY
     Dosage: 500 MG, BID
     Route: 048
     Dates: start: 20111215, end: 20120117
  2. IBUPROFEN TABLETS [Suspect]
  3. TEGRETOL [Suspect]
     Indication: EPILEPSY
     Dosage: 100 MG, QD
     Route: 048
     Dates: start: 20111215, end: 20120117

REACTIONS (6)
  - RASH [None]
  - DRUG RASH WITH EOSINOPHILIA AND SYSTEMIC SYMPTOMS [None]
  - PANCREATITIS [None]
  - ABDOMINAL PAIN [None]
  - MYOCARDITIS [None]
  - HEPATITIS [None]
